FAERS Safety Report 6663909-4 (Version None)
Quarter: 2010Q2

REPORT INFORMATION
  Report Type: 
  Country: None (occurrence: None)
  Receive Date: 20100401
  Receipt Date: 20100326
  Transmission Date: 20101027
  Serious: Yes (Hospitalization, Disabling, Other)
  Sender: FDA-Public Use
  Company Number: US-MERCK-0901USA03855

PATIENT
  Age: 52 Year
  Sex: Female

DRUGS (2)
  1. FOSAMAX [Suspect]
     Indication: RHEUMATOID ARTHRITIS
     Route: 048
     Dates: start: 20030101, end: 20070201
  2. FOSAMAX [Suspect]
     Route: 048
     Dates: start: 20020101

REACTIONS (18)
  - ACTINOMYCOSIS [None]
  - ANXIETY [None]
  - ARTHROPATHY [None]
  - BACK DISORDER [None]
  - BLOOD DISORDER [None]
  - BRUXISM [None]
  - CATARACT [None]
  - CYSTITIS [None]
  - DEPRESSION [None]
  - GALLBLADDER DISORDER [None]
  - KIDNEY INFECTION [None]
  - NEPHROLITHIASIS [None]
  - OSTEOMYELITIS [None]
  - OSTEONECROSIS [None]
  - STAPHYLOCOCCAL INFECTION [None]
  - TENDONITIS [None]
  - TOOTH DISORDER [None]
  - TOOTH FRACTURE [None]
